FAERS Safety Report 6583745-7 (Version None)
Quarter: 2010Q1

REPORT INFORMATION
  Report Type: 
  Country: None (occurrence: None)
  Receive Date: 20100216
  Receipt Date: 20100211
  Transmission Date: 20100710
  Serious: Yes (Other)
  Sender: FDA-Public Use
  Company Number: US-MERCK-0705USA04182

PATIENT
  Age: 58 Year
  Sex: Female
  Weight: 53 kg

DRUGS (3)
  1. FOSAMAX [Suspect]
     Indication: OSTEOPOROSIS
     Route: 048
     Dates: start: 19980929, end: 19990801
  2. FOSAMAX [Suspect]
     Route: 048
     Dates: start: 19990930, end: 20000101
  3. CORTICOSTEROIDS (UNSPECIFIED) [Concomitant]
     Route: 065
     Dates: start: 19900101

REACTIONS (7)
  - ARTHRALGIA [None]
  - CARDIOVASCULAR DISORDER [None]
  - LIPIDS INCREASED [None]
  - MASS [None]
  - MYOCARDIAL INFARCTION [None]
  - RHEUMATOID ARTHRITIS [None]
  - TOOTH FRACTURE [None]
